FAERS Safety Report 6439724-3 (Version None)
Quarter: 2009Q4

REPORT INFORMATION
  Report Type: 
  Country: None (occurrence: None)
  Receive Date: 20091113
  Receipt Date: 20091105
  Transmission Date: 20100525
  Serious: Yes (Other)
  Sender: FDA-Public Use
  Company Number: IT-ROCHE-667120

PATIENT
  Sex: Male

DRUGS (4)
  1. TAMIFLU [Suspect]
     Route: 048
     Dates: start: 20091031, end: 20091102
  2. CLARITHROMYCIN [Concomitant]
     Route: 048
     Dates: start: 20091031
  3. CEFTRIAXONE [Concomitant]
     Route: 042
     Dates: start: 20091031, end: 20091102
  4. PARACETAMOL [Concomitant]
     Route: 048
     Dates: start: 20091031, end: 20091031

REACTIONS (2)
  - HALLUCINATION [None]
  - IRRITABILITY [None]
